FAERS Safety Report 8305861-1 (Version None)
Quarter: 2012Q1

REPORT INFORMATION
  Report Type: 
  Country: None (occurrence: None)
  Receive Date: 20120326
  Receipt Date: 20111206
  Transmission Date: 20120608
  Serious: Yes (Other)
  Sender: FDA-Public Use
  Company Number: PHEH2011US00601

PATIENT
  Sex: Female

DRUGS (3)
  1. LISINOPRIL [Concomitant]
  2. TASIGNA [Suspect]
     Indication: CHRONIC MYELOID LEUKAEMIA
     Dosage: 300 MG, BID, ORAL, 150 MG, BID, ORAL
     Route: 048
  3. MULTIVITAMINS (ASCORBIC ACID, ERGOCALCIFEROL, FOLIC ACID, NICOTINAMIDE [Concomitant]

REACTIONS (3)
  - PANCREATIC CYST [None]
  - PANCREATIC ENZYMES INCREASED [None]
  - IMPAIRED WORK ABILITY [None]
